FAERS Safety Report 4490998-8 (Version None)
Quarter: 2004Q4

REPORT INFORMATION
  Report Type: 
  Country: None (occurrence: None)
  Receive Date: 20041027
  Receipt Date: 20041014
  Transmission Date: 20050328
  Serious: Yes (Hospitalization)
  Sender: FDA-Public Use
  Company Number: STA-AE-04-MTX-488

PATIENT
  Age: 63 Year
  Sex: Male

DRUGS (16)
  1. RHEUMATREX [Suspect]
     Indication: RHEUMATOID ARTHRITIS
     Dosage: 4 MG PER WEEK, ORAL
     Route: 048
     Dates: start: 19990220, end: 20020602
  2. RHEUMATREX [Suspect]
     Indication: RHEUMATOID ARTHRITIS
     Dosage: 6 MG PER WEEK
     Dates: start: 20020603, end: 20030807
  3. RHEUMATREX [Suspect]
     Indication: RHEUMATOID ARTHRITIS
     Dosage: 8 MG PER WEEK; 10 MG PER WEEK
     Dates: start: 20030808, end: 20030926
  4. RHEUMATREX [Suspect]
     Indication: RHEUMATOID ARTHRITIS
     Dosage: 8 MG PER WEEK; 10 MG PER WEEK
     Dates: start: 20030927, end: 20040513
  5. METHOTREXATE [Suspect]
     Indication: RHEUMATOID ARTHRITIS
     Dosage: 10 MG PER WEEK, ORAL
     Route: 048
     Dates: start: 20031001, end: 20040513
  6. REMICADE [Suspect]
     Indication: RHEUMATOID ARTHRITIS
     Dosage: 3 MG/KG PER DAY, INTRAVENOUS DRIP
     Route: 041
     Dates: start: 20031021, end: 20031021
  7. REMICADE [Suspect]
     Indication: RHEUMATOID ARTHRITIS
     Dosage: 3 MG/KG PER DAY, INTRAVENOUS DRIP
     Route: 041
     Dates: start: 20031104, end: 20031104
  8. REMICADE [Suspect]
     Indication: RHEUMATOID ARTHRITIS
     Dosage: 3 MG/KG PER DAY, INTRAVENOUS DRIP
     Route: 041
     Dates: start: 20031202, end: 20031202
  9. REMICADE [Suspect]
     Indication: RHEUMATOID ARTHRITIS
     Dosage: 3 MG/KG PER DAY, INTRAVENOUS DRIP
     Route: 041
     Dates: start: 20040127, end: 20040127
  10. REMICADE [Suspect]
     Indication: RHEUMATOID ARTHRITIS
     Dosage: 3 MG/KG PER DAY, INTRAVENOUS DRIP
     Route: 041
     Dates: start: 20040323, end: 20040323
  11. PREDNISOLONE [Concomitant]
  12. FOLIC ACID [Concomitant]
  13. LANSOPRAZOLE [Concomitant]
  14. PYDOXAL (PYRIDOXAL PHOSPHATE) [Concomitant]
  15. ISONIAZID [Concomitant]
  16. MOBIC [Concomitant]

REACTIONS (3)
  - HEADACHE [None]
  - OXYGEN SATURATION DECREASED [None]
  - PNEUMOCYSTIS CARINII PNEUMONIA [None]
